FAERS Safety Report 5899063-6 (Version None)
Quarter: 2008Q3

REPORT INFORMATION
  Report Type: 
  Country: None (occurrence: None)
  Receive Date: 20080925
  Receipt Date: 20080912
  Transmission Date: 20090109
  Serious: Yes (Other)
  Sender: FDA-Public Use
  Company Number: US-ELI_LILLY_AND_COMPANY-US200808000871

PATIENT
  Sex: Female

DRUGS (6)
  1. CYMBALTA [Suspect]
     Dosage: 30 MG, UNK
     Dates: start: 20080512, end: 20080714
  2. CYCLOBENZAPRINE HCL [Concomitant]
     Dosage: 15 MG, DAILY (1/D)
     Route: 048
     Dates: start: 20080317
  3. AMBIEN [Concomitant]
     Dosage: 6.25 MG, OTHER
     Route: 048
     Dates: start: 20080317
  4. ULTRAM [Concomitant]
     Dosage: 50 MG, AS NEEDED
     Route: 048
     Dates: start: 20080317
  5. NAPRELAN [Concomitant]
     Dosage: 375 MG, DAILY (1/D)
     Route: 048
     Dates: start: 20080317
  6. PREVACID [Concomitant]
     Dosage: 30 MG, DAILY (1/D)
     Route: 048
     Dates: start: 20080317

REACTIONS (5)
  - ANXIETY [None]
  - CRYING [None]
  - FEELING ABNORMAL [None]
  - HYPERSENSITIVITY [None]
  - PANIC ATTACK [None]
